FAERS Safety Report 13064559 (Version 2)
Quarter: 2017Q1

REPORT INFORMATION
  Report Type: Spontaneous
  Country: IT (occurrence: IT)
  Receive Date: 20161227
  Receipt Date: 20170127
  Transmission Date: 20170428
  Serious: Yes (Hospitalization, Other)
  Sender: FDA-Public Use
  Company Number: IT-TEVA-720955ACC

PATIENT
  Age: 43 Year
  Sex: Female

DRUGS (2)
  1. LORMETAZEPAM [Interacting]
     Active Substance: LORMETAZEPAM
     Route: 061
  2. DIAZEPAM. [Suspect]
     Active Substance: DIAZEPAM

REACTIONS (3)
  - Labelled drug-drug interaction medication error [Unknown]
  - Somnolence [Unknown]
  - Wrong technique in product usage process [Unknown]
